FAERS Safety Report 6531826-6 (Version None)
Quarter: 2010Q1

REPORT INFORMATION
  Report Type: 
  Country: None (occurrence: None)
  Receive Date: 20100108
  Receipt Date: 20091228
  Transmission Date: 20100710
  Serious: Yes (Life-Threatening, Hospitalization)
  Sender: FDA-Public Use
  Company Number: US-KINGPHARMUSA00001-K200900610

PATIENT
  Age: 56 Year
  Sex: Female

DRUGS (11)
  1. ALTACE [Suspect]
     Indication: HYPERTENSION
     Dosage: 2.5 MG, QD
     Route: 048
     Dates: start: 20090415, end: 20090516
  2. ALTACE [Suspect]
     Indication: OEDEMA
     Dosage: 5 MG, QD
     Route: 048
     Dates: start: 20090501, end: 20090516
  3. HYDROCHLOROTHIAZIDE [Suspect]
     Indication: HYPERTENSION
     Dosage: 12.5 MG, QD
     Route: 048
     Dates: start: 20090415, end: 20090516
  4. HYDROCHLOROTHIAZIDE [Suspect]
     Indication: OEDEMA
     Dosage: 25 MG, QD
     Route: 048
     Dates: start: 20090501, end: 20090516
  5. MESTINON [Concomitant]
     Indication: MYASTHENIA GRAVIS
     Dosage: 540 MG, UNK
     Route: 048
     Dates: start: 19670101
  6. URBASON [Concomitant]
     Indication: MYASTHENIA GRAVIS
     Dosage: UNK %, UNK
     Route: 048
     Dates: start: 19850101
  7. URBASON [Concomitant]
     Indication: ADRENAL ATROPHY
  8. OMEP [Concomitant]
     Indication: GASTRIC DISORDER
     Dosage: 40 MG, QD
     Route: 048
     Dates: start: 19850101
  9. ACTONEL [Concomitant]
     Indication: OSTEOPOROSIS
     Dosage: 35 MG, QW
     Route: 048
     Dates: start: 19850101
  10. LYRICA [Concomitant]
     Indication: MUSCULAR WEAKNESS
     Dosage: 50 MG, UNK
     Route: 048
     Dates: start: 20090501
  11. POLYGAM S/D [Concomitant]
     Indication: DEMYELINATING POLYNEUROPATHY

REACTIONS (21)
  - ANGIOEDEMA [None]
  - ARTHRALGIA [None]
  - ATRIAL HYPERTROPHY [None]
  - BLOOD PRESSURE INCREASED [None]
  - BONE PAIN [None]
  - CIRCULATORY COLLAPSE [None]
  - DEPRESSED LEVEL OF CONSCIOUSNESS [None]
  - DYSPHAGIA [None]
  - DYSPNOEA [None]
  - FALL [None]
  - FOLATE DEFICIENCY [None]
  - HAEMATOMA [None]
  - LARYNGEAL OEDEMA [None]
  - PANIC ATTACK [None]
  - PNEUMONIA [None]
  - POLYURIA [None]
  - PULMONARY OEDEMA [None]
  - RESPIRATORY DISORDER [None]
  - SWOLLEN TONGUE [None]
  - URINARY INCONTINENCE [None]
  - WOUND [None]
